FAERS Safety Report 9775307 (Version 1)
Quarter: 2013Q4

REPORT INFORMATION
  Report Type: Spontaneous
  Country: US (occurrence: US)
  Receive Date: 20131220
  Receipt Date: 20131220
  Transmission Date: 20140711
  Serious: Yes (Hospitalization, Other)
  Sender: FDA-Public Use
  Company Number: US-RB-061532-13

PATIENT
  Age: 27 Year
  Sex: Female

DRUGS (1)
  1. SUBOXONE FILM [Suspect]
     Indication: PRODUCT USED FOR UNKNOWN INDICATION
     Dosage: SUBOXONE FILM; DOSAGE DETAILS UNKNOWN
     Route: 065

REACTIONS (2)
  - Suicidal ideation [Not Recovered/Not Resolved]
  - Hospitalisation [Not Recovered/Not Resolved]
